FAERS Safety Report 8963870 (Version 1)
Quarter: 2012Q4

REPORT INFORMATION
  Report Type: 
  Country: TR (occurrence: TR)
  Receive Date: 20121214
  Receipt Date: 20121214
  Transmission Date: 20130627
  Serious: Yes (Other)
  Sender: FDA-Public Use
  Company Number: TR-MERCK-1212TUR002601

PATIENT
  Sex: Female

DRUGS (4)
  1. BETAMETHASONE [Suspect]
     Indication: MATERNAL THERAPY TO ENHANCE FOETAL LUNG MATURITY
     Dosage: 12 mg, bid
     Route: 030
  2. INDOMETHACIN [Suspect]
     Indication: TOCOLYSIS
     Dosage: 25 mg, qid
  3. NIFEDIPINE [Concomitant]
     Dosage: 20 mg, qid
  4. AMOXICILLIN (+) CLAVULANIC ACID [Concomitant]
     Dosage: 1.5 g, qid for 10 days

REACTIONS (2)
  - Caesarean section [Recovered/Resolved]
  - Foetal exposure during pregnancy [Recovered/Resolved]
